FAERS Safety Report 7222560-8 (Version None)
Quarter: 2011Q1

REPORT INFORMATION
  Report Type: 
  Country: None (occurrence: None)
  Receive Date: 20110112
  Receipt Date: 20110111
  Transmission Date: 20110831
  Serious: Yes (Other)
  Sender: FDA-Public Use
  Company Number: US-PFIZER INC-2010039651

PATIENT
  Sex: Female
  Weight: 63.5 kg

DRUGS (7)
  1. LIPITOR [Suspect]
     Indication: BLOOD CHOLESTEROL INCREASED
     Dosage: 20 MG, 1X/DAY
  2. PRILOSEC [Suspect]
     Indication: PROPHYLAXIS AGAINST GASTROINTESTINAL ULCER
     Dosage: UNK
     Dates: start: 20090101, end: 20090101
  3. FISH OIL [Concomitant]
  4. PROTONIX [Suspect]
     Indication: GASTROOESOPHAGEAL REFLUX DISEASE
     Dosage: 40 MG, 1X/DAY
     Route: 048
     Dates: start: 20100324
  5. MULTI-VITAMINS [Concomitant]
     Dosage: UNK
  6. CALCIUM/VITAMIN D/VITAMIN K [Concomitant]
     Dosage: UNK
  7. ACETYLSALICYLIC ACID [Concomitant]
     Dosage: 81 MG, 1X/DAY

REACTIONS (15)
  - ARTHRITIS [None]
  - ARTHRALGIA [None]
  - ABDOMINAL DISTENSION [None]
  - NAUSEA [None]
  - BLOOD GLUCOSE INCREASED [None]
  - FLATULENCE [None]
  - BLOOD CHOLESTEROL INCREASED [None]
  - ABDOMINAL DISCOMFORT [None]
  - FREQUENT BOWEL MOVEMENTS [None]
  - OROPHARYNGEAL PAIN [None]
  - MALAISE [None]
  - WEIGHT DECREASED [None]
  - COELIAC DISEASE [None]
  - ABDOMINAL PAIN [None]
  - SINUSITIS [None]
